FAERS Safety Report 21440533 (Version 1)
Quarter: 2022Q4

REPORT INFORMATION
  Report Type: Spontaneous
  Country: US (occurrence: None)
  Receive Date: 20221009
  Receipt Date: 20221009
  Transmission Date: 20230112
  Serious: Yes (Other)
  Sender: FDA-Public Use
  Company Number: None

PATIENT
  Age: 30 Year
  Sex: Female
  Weight: 53.55 kg

DRUGS (2)
  1. DOXYCYCLINE HYCLATE [Suspect]
     Active Substance: DOXYCYCLINE HYCLATE
     Indication: Sexually transmitted disease
     Dosage: OTHER QUANTITY : 14 CAPSULE(S);?FREQUENCY : EVERY 12 HOURS;?
     Route: 048
  2. AZITHROMYCIN [Concomitant]
     Active Substance: AZITHROMYCIN

REACTIONS (3)
  - Anxiety [None]
  - Mood swings [None]
  - Insomnia [None]

NARRATIVE: CASE EVENT DATE: 20221005
